FAERS Safety Report 10340689 (Version 2)
Quarter: 2014Q3

REPORT INFORMATION
  Report Type: Spontaneous
  Country: US (occurrence: US)
  Receive Date: 20140724
  Receipt Date: 20140724
  Transmission Date: 20150326
  Serious: Yes (Hospitalization, Disabling, Other)
  Sender: FDA-Public Use
  Company Number: US-009507513-2010SP041972

PATIENT
  Sex: Female
  Weight: 62.13 kg

DRUGS (1)
  1. NUVARING [Suspect]
     Active Substance: ETHINYL ESTRADIOL\ETONOGESTREL
     Indication: CONTRACEPTION
     Dosage: UNK
     Dates: start: 20070712, end: 2007

REACTIONS (9)
  - Peripheral embolism [Unknown]
  - Drug hypersensitivity [Unknown]
  - Nephrolithiasis [Unknown]
  - Abdominal pain [Unknown]
  - Prothrombin time prolonged [Unknown]
  - Pulmonary infarction [Unknown]
  - Pulmonary valve incompetence [Unknown]
  - Pulmonary embolism [Unknown]
  - Acute sinusitis [Unknown]

NARRATIVE: CASE EVENT DATE: 2007
